FAERS Safety Report 8366100-9 (Version None)
Quarter: 2012Q2

REPORT INFORMATION
  Report Type: 
  Country: None (occurrence: None)
  Receive Date: 20120517
  Receipt Date: 20120509
  Transmission Date: 20120825
  Serious: Yes (Hospitalization)
  Sender: FDA-Public Use
  Company Number: FR-UCBSA-057065

PATIENT
  Age: 66 Year
  Sex: Male

DRUGS (1)
  1. KEPPRA [Suspect]
     Indication: EPILEPSY
     Dosage: DAILY DOSE: 2 UNITS
     Route: 048
     Dates: start: 20120405, end: 20120408

REACTIONS (2)
  - LARYNGEAL OEDEMA [None]
  - OEDEMA MOUTH [None]
